FAERS Safety Report 8574495-6 (Version None)
Quarter: 2012Q3

REPORT INFORMATION
  Report Type: 
  Country: None (occurrence: None)
  Receive Date: 20120806
  Receipt Date: 20120117
  Transmission Date: 20120928
  Serious: No
  Sender: FDA-Public Use
  Company Number: US-ABBOTT-12P-163-0895049-00

PATIENT
  Sex: Male
  Weight: 68.1 kg

DRUGS (2)
  1. SEROQUEL [Concomitant]
     Indication: SCHIZOPHRENIA, PARANOID TYPE
  2. DEPAKOTE ER [Suspect]
     Indication: SCHIZOPHRENIA, PARANOID TYPE
     Dates: start: 19950101

REACTIONS (5)
  - SUICIDAL IDEATION [None]
  - ASTHENIA [None]
  - WEIGHT DECREASED [None]
  - FALL [None]
  - POLLAKIURIA [None]
